FAERS Safety Report 10722007 (Version 1)
Quarter: 2015Q1

REPORT INFORMATION
  Report Type: Spontaneous
  Country: FR (occurrence: FR)
  Receive Date: 20150120
  Receipt Date: 20150120
  Transmission Date: 20150721
  Serious: Yes (Hospitalization)
  Sender: FDA-Public Use
  Company Number: FR-MERCK-1501FRA005510

PATIENT
  Age: 49 Year
  Sex: Male

DRUGS (4)
  1. NOXAFIL [Suspect]
     Active Substance: POSACONAZOLE
     Dosage: DOSAGE: 565 NG/ML
     Route: 048
     Dates: start: 20141020, end: 20141020
  2. NOXAFIL [Suspect]
     Active Substance: POSACONAZOLE
     Dosage: TOTAL DAILY DOSE: 400 MG, FREQUENCY: BID
     Route: 048
     Dates: start: 2012, end: 20141007
  3. NOXAFIL [Suspect]
     Active Substance: POSACONAZOLE
     Dosage: DOSAGE: 567 NG/ML
     Route: 048
     Dates: start: 20141008, end: 20141008
  4. NOXAFIL [Suspect]
     Active Substance: POSACONAZOLE
     Dosage: TOTAL DAILY DOSE: 400 MG, FREQUENCY: BID
     Route: 048
     Dates: start: 20141016, end: 20141019

REACTIONS (1)
  - Cognitive disorder [Unknown]

NARRATIVE: CASE EVENT DATE: 20141003
